FAERS Safety Report 7199331-4 (Version None)
Quarter: 2010Q4

REPORT INFORMATION
  Report Type: 
  Country: None (occurrence: None)
  Receive Date: 20101228
  Receipt Date: 20101217
  Transmission Date: 20110411
  Serious: Yes (Other)
  Sender: FDA-Public Use
  Company Number: PL-BRISTOL-MYERS SQUIBB COMPANY-15440431

PATIENT
  Age: 35 Year
  Sex: Female

DRUGS (4)
  1. STOCRIN [Suspect]
     Indication: HIV INFECTION
  2. LAMIVUDINE [Suspect]
     Indication: HIV INFECTION
  3. TELZIR [Suspect]
     Indication: HIV INFECTION
  4. VIREAD [Suspect]
     Indication: HIV INFECTION

REACTIONS (2)
  - CYTOMEGALOVIRUS CHORIORETINITIS [None]
  - RETINAL DEGENERATION [None]
